FAERS Safety Report 12555666 (Version 1)
Quarter: 2016Q3

REPORT INFORMATION
  Report Type: Spontaneous
  Country: US (occurrence: None)
  Receive Date: 20160713
  Receipt Date: 20160713
  Transmission Date: 20161109
  Serious: No
  Sender: FDA-Public Use
  Company Number: None

PATIENT
  Age: 55 Year
  Sex: Male
  Weight: 62.3 kg

DRUGS (1)
  1. CISPLATIN. [Suspect]
     Active Substance: CISPLATIN
     Dates: end: 20151214

REACTIONS (4)
  - Cellulitis [None]
  - Pneumothorax [None]
  - Deafness [None]
  - Wound dehiscence [None]

NARRATIVE: CASE EVENT DATE: 20160426
